FAERS Safety Report 4533782-9 (Version None)
Quarter: 2004Q4

REPORT INFORMATION
  Report Type: 
  Country: None (occurrence: None)
  Receive Date: 20041206
  Receipt Date: 20041015
  Transmission Date: 20050328
  Serious: No
  Sender: FDA-Public Use
  Company Number: USA041081445

PATIENT
  Sex: Male

DRUGS (3)
  1. CYMBALTA [Suspect]
     Indication: DEPRESSION
     Dosage: 60 MG/1 DAY
     Dates: start: 20041013, end: 20041013
  2. LEXAPRO [Concomitant]
  3. WELLBUTRIN (BURPROPION HYDROCHLORIDE) [Concomitant]

REACTIONS (2)
  - DRUG INTERACTION [None]
  - URINARY RETENTION [None]
